FAERS Safety Report 8421851-2 (Version None)
Quarter: 2012Q2

REPORT INFORMATION
  Report Type: 
  Country: None (occurrence: None)
  Receive Date: 20120605
  Receipt Date: 20120605
  Transmission Date: 20120825
  Serious: Yes (Disabling)
  Sender: FDA-Public Use
  Company Number: None

PATIENT
  Sex: Female
  Weight: 54.4316 kg

DRUGS (2)
  1. BOTOX [Suspect]
     Indication: SKIN COSMETIC PROCEDURE
     Dosage: 20-30 UNITS ? 4-6 MONTHS? INJECT
     Dates: start: 20000101, end: 20090101
  2. BOTOX [Suspect]
     Indication: SKIN COSMETIC PROCEDURE
     Dosage: 20-30 UNITS ? 4-6 MONTHS? INJECT
     Dates: start: 20120101

REACTIONS (7)
  - MUSCULAR WEAKNESS [None]
  - PARAESTHESIA [None]
  - APTYALISM [None]
  - VISION BLURRED [None]
  - MYALGIA [None]
  - LACRIMATION DECREASED [None]
  - HYPOAESTHESIA [None]
